FAERS Safety Report 9334632 (Version 1)
Quarter: 2013Q2

REPORT INFORMATION
  Report Type: Spontaneous
  Country: US (occurrence: US)
  Receive Date: 20130606
  Receipt Date: 20130606
  Transmission Date: 20140414
  Serious: No
  Sender: FDA-Public Use
  Company Number: US-AMGEN-USASP2013010294

PATIENT
  Age: 82 Year
  Sex: Female
  Weight: 73.7 kg

DRUGS (5)
  1. PROLIA [Suspect]
     Indication: OSTEOPOROSIS POSTMENOPAUSAL
     Dosage: UNK UNK, Q6MO
     Dates: start: 20110711, end: 20120618
  2. PROLIA [Suspect]
  3. BYSTOLIC [Concomitant]
     Route: 048
  4. SIMVASTATIN [Concomitant]
  5. EXFORGE [Concomitant]
     Indication: HYPERTENSION
     Dosage: UNK
     Route: 048
     Dates: start: 2009

REACTIONS (1)
  - Rash [Recovered/Resolved]
